FAERS Safety Report 8767412 (Version 3)
Quarter: 2012Q4

REPORT INFORMATION
  Report Type: Report from Study
  Country: RU (occurrence: RU)
  Receive Date: 20120904
  Receipt Date: 20121001
  Transmission Date: 20130627
  Serious: Yes (Hospitalization, Other)
  Sender: FDA-Public Use
  Company Number: RU-TEVA-357188USA

PATIENT
  Age: 67 Year
  Sex: Male

DRUGS (4)
  1. TREANDA [Suspect]
     Indication: CHRONIC LYMPHOCYTIC LEUKAEMIA
     Dosage: 170 mg, UID,QD
     Route: 042
     Dates: start: 20120720, end: 20120721
  2. TREANDA [Suspect]
     Dosage: 170 mg, UID,QD
     Route: 042
     Dates: start: 20120825
  3. MABTHERA [Concomitant]
     Indication: CHRONIC LYMPHOCYTIC LEUKAEMIA
     Dosage: 100 mg
     Route: 042
     Dates: start: 20120718, end: 20120718
  4. MABTHERA [Concomitant]
     Dosage: 600 mg
     Route: 042
     Dates: start: 20120719

REACTIONS (1)
  - Eczema [Recovered/Resolved]
